FAERS Safety Report 19704525 (Version 1)
Quarter: 2021Q3

REPORT INFORMATION
  Report Type: Other
  Country: CH (occurrence: CH)
  Receive Date: 20210816
  Receipt Date: 20210816
  Transmission Date: 20211014
  Serious: Yes (Other)
  Sender: FDA-Public Use
  Company Number: CH-ROCHE-2889054

PATIENT
  Age: 63 Year
  Sex: Female
  Weight: 55 kg

DRUGS (7)
  1. CARBOPLATINE [Suspect]
     Active Substance: CARBOPLATIN
     Indication: BREAST CANCER
     Dosage: 1X ON 12?APR, 1X ON 03?MAY, 1X ON 21?MAY, 1X ON 14?JUN, 1X ON 05?JUL?2021; CYCLICAL
     Route: 042
     Dates: start: 20210412
  2. HERCEPTIN [Suspect]
     Active Substance: TRASTUZUMAB
     Indication: BREAST CANCER
     Dosage: 1X ON 12?APR, 1X ON 03?MAY, 1X ON 21?MAY, 1X ON 14?JUN, 1X ON 05?JUL?2021; CYCLICAL
     Route: 041
     Dates: start: 20210412
  3. PRIMPERAN [Suspect]
     Active Substance: METOCLOPRAMIDE HYDROCHLORIDE
     Indication: NAUSEA
     Dosage: 10 MG 2X/D IN RESERVE; AS NECESSARY
     Route: 048
  4. PACLITAXEL. [Suspect]
     Active Substance: PACLITAXEL
     Indication: BREAST CANCER
     Dosage: CYCLICAL?1X ON 12/04 (32 MG), 1X ON 21/04 (64 MG), 1X 88 MG STARTING 03/05, 1X ON 10/05, 1X ON?21/05
     Route: 042
     Dates: start: 20210412
  5. VANNAIR [Suspect]
     Active Substance: BUDESONIDE\FORMOTEROL FUMARATE DIHYDRATE
     Indication: PRODUCT USED FOR UNKNOWN INDICATION
     Dosage: BUDESONIDE+FORMOTEROL: (VANNAIR 200/6) 2 PUSHS 2X/J
     Route: 055
  6. PERJETA [Suspect]
     Active Substance: PERTUZUMAB
     Indication: BREAST CANCER
     Dosage: 1X ON 12?APR, 1X ON 03?MAY, 1X ON 21?MAY, 1X ON 14?JUN, 1X ON 05?JUL?2021; CYCLICAL
     Route: 042
     Dates: start: 20210412
  7. CORDARONE [Suspect]
     Active Substance: AMIODARONE HYDROCHLORIDE
     Indication: RESPIRATORY DISORDER
     Dosage: ONE DAY
     Route: 048

REACTIONS (1)
  - Arrhythmia [Recovered/Resolved]

NARRATIVE: CASE EVENT DATE: 20210719
